FAERS Safety Report 5832121-0 (Version None)
Quarter: 2008Q3

REPORT INFORMATION
  Report Type: 
  Country: None (occurrence: None)
  Receive Date: 20080731
  Receipt Date: 20080731
  Transmission Date: 20090109
  Serious: No
  Sender: FDA-Public Use
  Company Number: None

PATIENT
  Age: 51 Year
  Sex: Male
  Weight: 122.4712 kg

DRUGS (1)
  1. DIGITEK [Suspect]

REACTIONS (8)
  - ACTIVITIES OF DAILY LIVING IMPAIRED [None]
  - BLOOD PRESSURE DECREASED [None]
  - COLOUR BLINDNESS [None]
  - CONFUSIONAL STATE [None]
  - DECREASED INTEREST [None]
  - FATIGUE [None]
  - INSOMNIA [None]
  - VISION BLURRED [None]
